FAERS Safety Report 13848848 (Version 1)
Quarter: 2017Q3

REPORT INFORMATION
  Report Type: Spontaneous
  Country: US (occurrence: US)
  Receive Date: 20170809
  Receipt Date: 20170809
  Transmission Date: 20171127
  Serious: No
  Sender: FDA-Public Use
  Company Number: US-009507513-1707USA006098

PATIENT
  Age: 35 Year
  Sex: Female
  Weight: 78.91 kg

DRUGS (1)
  1. IMPLANON [Suspect]
     Active Substance: ETONOGESTREL
     Dosage: 2 RODS, UNK
     Route: 059
     Dates: start: 2007

REACTIONS (4)
  - Migration of implanted drug [Recovered/Resolved]
  - Overdose [Unknown]
  - Complication of device removal [Recovered/Resolved]
  - Difficulty removing drug implant [Recovered/Resolved]

NARRATIVE: CASE EVENT DATE: 2007
